FAERS Safety Report 5813554-5 (Version None)
Quarter: 2008Q3

REPORT INFORMATION
  Report Type: 
  Country: None (occurrence: None)
  Receive Date: 20080717
  Receipt Date: 20080714
  Transmission Date: 20090109
  Serious: Yes (Hospitalization, Other)
  Sender: FDA-Public Use
  Company Number: US-MERCK-0706USA00888

PATIENT
  Age: 36 Year
  Sex: Female
  Weight: 71 kg

DRUGS (16)
  1. FOSAMAX [Suspect]
     Indication: OSTEOPOROSIS
     Route: 048
     Dates: start: 20020601, end: 20060101
  2. FOSAMAX [Suspect]
     Route: 048
     Dates: start: 19980401
  3. FOSAMAX [Suspect]
     Route: 048
     Dates: start: 20010101
  4. PREDNISONE [Concomitant]
     Indication: SYSTEMIC LUPUS ERYTHEMATOSUS
     Route: 065
     Dates: start: 19930101
  5. NEURONTIN [Concomitant]
     Indication: SYSTEMIC LUPUS ERYTHEMATOSUS
     Route: 065
     Dates: start: 20000101
  6. PLAVIX [Concomitant]
     Route: 065
  7. ASPIRIN [Concomitant]
     Route: 065
  8. ADVAIR DISKUS 100/50 [Concomitant]
     Route: 065
  9. ALBUTEROL [Concomitant]
     Route: 065
  10. MS CONTIN [Concomitant]
     Route: 065
  11. TOPAMAX [Concomitant]
     Route: 065
     Dates: end: 20040101
  12. METHOTREXATE [Concomitant]
     Indication: SYSTEMIC LUPUS ERYTHEMATOSUS
     Route: 065
     Dates: start: 20000217, end: 20060401
  13. METHOTREXATE [Concomitant]
     Route: 065
     Dates: start: 20060601
  14. PLAQUENIL [Concomitant]
     Route: 065
     Dates: start: 19930101, end: 20010101
  15. CALCIUM (UNSPECIFIED) [Concomitant]
     Route: 065
     Dates: start: 19980101
  16. VITAMIN D (UNSPECIFIED) [Concomitant]
     Route: 065
     Dates: start: 19980101

REACTIONS (46)
  - ABDOMINAL PAIN [None]
  - ADDISON'S DISEASE [None]
  - ANTIPHOSPHOLIPID SYNDROME [None]
  - ARTHROPATHY [None]
  - BENIGN NEOPLASM [None]
  - BLOOD POTASSIUM DECREASED [None]
  - BONE DENSITY DECREASED [None]
  - BRONCHITIS [None]
  - CENTRAL NERVOUS SYSTEM LESION [None]
  - CEREBELLAR ATROPHY [None]
  - CEREBELLAR INFARCTION [None]
  - CEREBRAL CALCIFICATION [None]
  - CEREBROVASCULAR ACCIDENT [None]
  - COMPLEX PARTIAL SEIZURES [None]
  - CONSTIPATION [None]
  - DEHYDRATION [None]
  - DIARRHOEA [None]
  - DUODENITIS [None]
  - DYSAESTHESIA [None]
  - ENCEPHALITIS [None]
  - FACE INJURY [None]
  - FALL [None]
  - FOCAL NODULAR HYPERPLASIA [None]
  - FRACTURED SACRUM [None]
  - GASTRIC DISORDER [None]
  - GASTROENTERITIS [None]
  - GASTROOESOPHAGEAL REFLUX DISEASE [None]
  - HEPATITIS [None]
  - HIATUS HERNIA [None]
  - HYPOPITUITARISM [None]
  - HYPOVOLAEMIA [None]
  - INFECTION [None]
  - LEUKOPLAKIA ORAL [None]
  - NAUSEA [None]
  - PANCREATITIS [None]
  - PHARYNGITIS [None]
  - RATHKE'S CLEFT CYST [None]
  - RECTAL HAEMORRHAGE [None]
  - RENAL CYST [None]
  - SINUSITIS [None]
  - SYSTEMIC LUPUS ERYTHEMATOSUS [None]
  - TEMPOROMANDIBULAR JOINT SYNDROME [None]
  - TRANSIENT ISCHAEMIC ATTACK [None]
  - URINARY INCONTINENCE [None]
  - VASCULAR HEADACHE [None]
  - VASCULITIS [None]
